FAERS Safety Report 9014072 (Version 2)
Quarter: 2013Q1

REPORT INFORMATION
  Report Type: Report from Study
  Country: US (occurrence: US)
  Receive Date: 20130115
  Receipt Date: 20130128
  Transmission Date: 20140127
  Serious: Yes (Hospitalization)
  Sender: FDA-Public Use
  Company Number: US-ROCHE-1178349

PATIENT
  Age: 66 Year
  Sex: Female
  Weight: 166 kg

DRUGS (12)
  1. TRASTUZUMAB [Suspect]
     Indication: BREAST CANCER
     Dosage: LOADING DOSE
     Route: 042
     Dates: start: 20121002
  2. TRASTUZUMAB [Suspect]
     Dosage: MAINTENANCE DOSE, LAST DOSE PRIOR TO THE SAE 27-DEC-2012
     Route: 042
     Dates: start: 20121002, end: 20130107
  3. DOCETAXEL [Suspect]
     Indication: BREAST CANCER
     Dosage: LAST DOSE PRIOR TO SAE:27/DEC/2012.
     Route: 042
     Dates: start: 20121002, end: 20121227
  4. CARBOPLATIN [Suspect]
     Indication: BREAST CANCER
     Dosage: LAST DOSE PRIOR TO THE SAE 27-DEC-2012
     Route: 042
     Dates: start: 20121002, end: 20121227
  5. LOSARTAN POTASSIUM [Concomitant]
     Route: 065
     Dates: start: 20060227, end: 20130107
  6. METFORMIN HYDROCHLORIDE [Concomitant]
     Route: 065
     Dates: start: 20090601, end: 20130107
  7. SYNTHROID [Concomitant]
     Route: 065
     Dates: start: 20090620
  8. LOMOTIL [Concomitant]
     Dosage: 1-2 TAB
     Route: 065
     Dates: start: 20121228
  9. IMODIUM ADVANCED [Concomitant]
     Route: 065
     Dates: start: 20121003
  10. ZOFRAN [Concomitant]
     Route: 065
     Dates: start: 20120911
  11. PROCHLORPERAZINE MALEATE [Concomitant]
     Route: 065
     Dates: start: 20120911
  12. PERTUZUMAB [Suspect]
     Indication: BREAST CANCER
     Dosage: LAST DOSE PRIOR TO THE SAE 27/DEC/2012
     Route: 042
     Dates: start: 20121002, end: 20130107

REACTIONS (1)
  - Dehydration [Recovered/Resolved]
